FAERS Safety Report 4959187-4 (Version None)
Quarter: 2006Q1

REPORT INFORMATION
  Report Type: 
  Country: None (occurrence: None)
  Receive Date: 20060127
  Receipt Date: 20041207
  Transmission Date: 20060701
  Serious: Yes (Hospitalization)
  Sender: FDA-Public Use
  Company Number: 04-11-1557

PATIENT
  Age: 35 Year
  Sex: Female
  Weight: 108.4097 kg

DRUGS (3)
  1. CLOZAPINE [Suspect]
     Indication: MAJOR DEPRESSION
     Dosage: 225MG QD, ORAL
     Route: 048
     Dates: start: 20041015, end: 20041019
  2. TOPAMAX [Concomitant]
     Indication: SCHIZOAFFECTIVE DISORDER
  3. BENZTROPINE MESYLATE [Concomitant]
     Indication: BIPOLAR DISORDER

REACTIONS (1)
  - DRUG INEFFECTIVE [None]
